FAERS Safety Report 17124283 (Version 1)
Quarter: 2019Q4

REPORT INFORMATION
  Report Type: Spontaneous
  Country: US (occurrence: US)
  Receive Date: 20191206
  Receipt Date: 20191206
  Transmission Date: 20200122
  Serious: No
  Sender: FDA-Public Use
  Company Number: US-ROCHE-2361051

PATIENT
  Age: 36 Year
  Sex: Female

DRUGS (3)
  1. OCREVUS [Suspect]
     Active Substance: OCRELIZUMAB
     Indication: MULTIPLE SCLEROSIS
     Route: 065
     Dates: start: 201901
  2. NATALIZUMAB [Concomitant]
     Active Substance: NATALIZUMAB
  3. FINGOLIMOD. [Concomitant]
     Active Substance: FINGOLIMOD

REACTIONS (1)
  - Lymphopenia [Unknown]
